FAERS Safety Report 6517613-3 (Version None)
Quarter: 2009Q4

REPORT INFORMATION
  Report Type: 
  Country: None (occurrence: None)
  Receive Date: 20091224
  Receipt Date: 20091214
  Transmission Date: 20100525
  Serious: Yes (Hospitalization)
  Sender: FDA-Public Use
  Company Number: PHHY2009AU50555

PATIENT
  Sex: Female

DRUGS (2)
  1. CLOZARIL [Suspect]
     Dosage: 600 MG, UNK
     Dates: start: 19950904
  2. CLOZARIL [Suspect]
     Dosage: UNK

REACTIONS (2)
  - RESPIRATORY DISORDER [None]
  - RESPIRATORY FAILURE [None]
